FAERS Safety Report 12471898 (Version 1)
Quarter: 2016Q2

REPORT INFORMATION
  Report Type: Spontaneous
  Country: US (occurrence: None)
  Receive Date: 20160615
  Receipt Date: 20160615
  Transmission Date: 20160815
  Serious: Yes (Hospitalization)
  Sender: FDA-Public Use
  Company Number: None

PATIENT
  Age: 55 Year
  Sex: Male
  Weight: 65.7 kg

DRUGS (14)
  1. WARFARIN [Concomitant]
     Active Substance: WARFARIN
  2. LIPITOR [Concomitant]
     Active Substance: ATORVASTATIN CALCIUM
  3. ECOTRIN [Concomitant]
     Active Substance: ASPIRIN
  4. LEVAQUIN [Concomitant]
     Active Substance: LEVOFLOXACIN
  5. NORCO [Concomitant]
     Active Substance: ACETAMINOPHEN\HYDROCODONE BITARTRATE
  6. ZOFRAN [Concomitant]
     Active Substance: ONDANSETRON HYDROCHLORIDE
  7. FLAGYL [Concomitant]
     Active Substance: METRONIDAZOLE\METRONIDAZOLE HYDROCHLORIDE
  8. PLAVIX [Concomitant]
     Active Substance: CLOPIDOGREL BISULFATE
  9. HEPARIN [Suspect]
     Active Substance: HEPARIN SODIUM
     Indication: ANTICOAGULATION DRUG LEVEL BELOW THERAPEUTIC
     Dosage: RECENT 25,0000UNITS/250ML IV
     Route: 042
  10. PERICOLACE [Concomitant]
  11. VANC [Concomitant]
  12. SYNTHROID [Concomitant]
     Active Substance: LEVOTHYROXINE SODIUM
  13. COREG [Concomitant]
     Active Substance: CARVEDILOL
  14. COMBIVENT [Concomitant]
     Active Substance: ALBUTEROL SULFATE\IPRATROPIUM BROMIDE

REACTIONS (2)
  - Presyncope [None]
  - Thrombocytopenia [None]

NARRATIVE: CASE EVENT DATE: 20151221
